FAERS Safety Report 9344011 (Version 1)
Quarter: 2013Q2

REPORT INFORMATION
  Report Type: Spontaneous
  Country: US (occurrence: US)
  Receive Date: 20130612
  Receipt Date: 20130612
  Transmission Date: 20140414
  Serious: No
  Sender: FDA-Public Use
  Company Number: US-009507513-1306USA004684

PATIENT
  Sex: Male

DRUGS (3)
  1. SAPHRIS [Suspect]
     Indication: BIPOLAR DISORDER
     Dosage: RAPID DISSOLVE 5 ,START DATE: 8 MONTHS AGO,FREQUENCY UNSPECIFIED
     Route: 060
     Dates: start: 201210
  2. SAPHRIS [Suspect]
     Indication: ANXIETY
  3. CLONAZEPAM [Concomitant]

REACTIONS (2)
  - Depression [Unknown]
  - Therapeutic response decreased [Unknown]
